FAERS Safety Report 4473411-6 (Version None)
Quarter: 2004Q3

REPORT INFORMATION
  Report Type: 
  Country: None (occurrence: None)
  Receive Date: 20040917
  Receipt Date: 20040621
  Transmission Date: 20050211
  Serious: Yes (Other)
  Sender: FDA-Public Use
  Company Number: US-JNJFOC-20040305233

PATIENT
  Age: 40 Year
  Sex: Female
  Weight: 66.6788 kg

DRUGS (5)
  1. ORTHO EVRA [Suspect]
     Indication: CONTRACEPTION
     Dosage: 1 DOSE(S), 3 IN 4 WEEK, TRANSDERMAL
     Route: 062
     Dates: start: 20030801
  2. EFFEXOR [Concomitant]
  3. VALIUM [Concomitant]
  4. XANAX [Concomitant]
  5. ZYRTEC D (CETIRIZINE HYDROCHLORIDE) [Concomitant]

REACTIONS (5)
  - DIZZINESS [None]
  - HEADACHE [None]
  - NAUSEA [None]
  - SYNCOPE [None]
  - VOMITING [None]
